FAERS Safety Report 8587046-7 (Version None)
Quarter: 2012Q3

REPORT INFORMATION
  Report Type: 
  Country: None (occurrence: None)
  Receive Date: 20120810
  Receipt Date: 20120730
  Transmission Date: 20120928
  Serious: No
  Sender: FDA-Public Use
  Company Number: US-ASTRAZENECA-2012SE46235

PATIENT
  Age: 91 Year
  Sex: Female

DRUGS (1)
  1. NEXIUM [Suspect]
     Route: 048

REACTIONS (8)
  - GASTRIC MUCOSAL LESION [None]
  - PAIN [None]
  - NONSPECIFIC REACTION [None]
  - IMPAIRED HEALING [None]
  - GASTRIC DISORDER [None]
  - HIATUS HERNIA [None]
  - APHAGIA [None]
  - MALAISE [None]
